FAERS Safety Report 7767301-0 (Version None)
Quarter: 2011Q3

REPORT INFORMATION
  Report Type: 
  Country: None (occurrence: None)
  Receive Date: 20110922
  Receipt Date: 20100802
  Transmission Date: 20111222
  Serious: Yes (Other)
  Sender: FDA-Public Use
  Company Number: US-ASTRAZENECA-2010SE35951

PATIENT
  Sex: Female

DRUGS (2)
  1. SEROQUEL [Suspect]
     Route: 048
     Dates: start: 20100501
  2. SEROQUEL [Suspect]
     Indication: DEPRESSION
     Route: 048
     Dates: start: 20050101, end: 20100101

REACTIONS (5)
  - TOOTH INFECTION [None]
  - TOOTHACHE [None]
  - SUICIDAL IDEATION [None]
  - TOOTH ABSCESS [None]
  - DRUG DOSE OMISSION [None]
